FAERS Safety Report 6992937-4 (Version None)
Quarter: 2010Q3

REPORT INFORMATION
  Report Type: 
  Country: None (occurrence: None)
  Receive Date: 20100917
  Receipt Date: 20100907
  Transmission Date: 20110219
  Serious: Yes (Other)
  Sender: FDA-Public Use
  Company Number: US-SANOFI-AVENTIS-2010SA054149

PATIENT
  Age: 72 Year
  Sex: Male

DRUGS (6)
  1. MULTAQ [Suspect]
     Indication: ATRIAL FLUTTER
     Route: 048
     Dates: start: 20100525, end: 20100610
  2. LIPITOR [Concomitant]
  3. PLAVIX [Concomitant]
     Route: 048
  4. WARFARIN SODIUM [Concomitant]
     Dates: start: 20080101
  5. INSULIN [Concomitant]
  6. INVESTIGATIONAL DRUG [Concomitant]
     Indication: ANTICOAGULANT THERAPY

REACTIONS (3)
  - ATRIAL FLUTTER [None]
  - DIARRHOEA [None]
  - RASH PRURITIC [None]
